FAERS Safety Report 20999224 (Version 2)
Quarter: 2023Q1

REPORT INFORMATION
  Report Type: Spontaneous
  Country: US (occurrence: US)
  Receive Date: 20220623
  Receipt Date: 20230206
  Transmission Date: 20230418
  Serious: No
  Sender: FDA-Public Use
  Company Number: US-PFIZER INC-202101007707

PATIENT
  Age: 77 Year
  Sex: Female
  Weight: 74.84 kg

DRUGS (1)
  1. IBRANCE [Suspect]
     Active Substance: PALBOCICLIB
     Indication: Breast cancer female
     Dosage: 125 MG, 1X/DAY
     Route: 048

REACTIONS (2)
  - Product dose omission issue [Unknown]
  - Arthritis [Unknown]

NARRATIVE: CASE EVENT DATE: 20210730
